FAERS Safety Report 16805776 (Version 1)
Quarter: 2019Q3

REPORT INFORMATION
  Report Type: Spontaneous
  Country: US (occurrence: US)
  Receive Date: 20190913
  Receipt Date: 20190913
  Transmission Date: 20191005
  Serious: Yes (Hospitalization)
  Sender: FDA-Public Use
  Company Number: US-MYLANLABS-2019M1087035

PATIENT
  Age: 64 Year
  Sex: Female

DRUGS (1)
  1. RISEDRONATE [Suspect]
     Active Substance: RISEDRONATE SODIUM
     Indication: OSTEOPOROSIS
     Route: 065

REACTIONS (2)
  - Periorbital oedema [Recovering/Resolving]
  - Conjunctivitis [Recovering/Resolving]
